FAERS Safety Report 7069903-6 (Version None)
Quarter: 2010Q4

REPORT INFORMATION
  Report Type: 
  Country: None (occurrence: None)
  Receive Date: 20101028
  Receipt Date: 20100721
  Transmission Date: 20110411
  Serious: No
  Sender: FDA-Public Use
  Company Number: US-WYE-H16320710

PATIENT
  Age: 61 Year
  Sex: Female
  Weight: 71.73 kg

DRUGS (5)
  1. ADVIL [Suspect]
     Indication: BURSITIS
     Route: 048
     Dates: start: 20100501, end: 20100711
  2. ADVIL [Suspect]
     Indication: ANALGESIC THERAPY
  3. HYDROCHLOROTHIAZIDE [Concomitant]
  4. POTASSIUM CHLORIDE [Concomitant]
  5. ACTIVELLA [Concomitant]

REACTIONS (1)
  - CONJUNCTIVAL HAEMORRHAGE [None]
